FAERS Safety Report 21984956 (Version 1)
Quarter: 2023Q1

REPORT INFORMATION
  Report Type: Spontaneous
  Country: CL (occurrence: CL)
  Receive Date: 20230213
  Receipt Date: 20230213
  Transmission Date: 20230417
  Serious: Yes (Other)
  Sender: FDA-Public Use
  Company Number: CL-GLAXOSMITHKLINE-CL2023AMR018922

PATIENT

DRUGS (1)
  1. FLUTICASONE PROPIONATE [Suspect]
     Active Substance: FLUTICASONE PROPIONATE
     Indication: Product used for unknown indication
     Dosage: 2 PUFF(S), BID
     Dates: start: 20200122

REACTIONS (4)
  - Asthmatic crisis [Recovered/Resolved]
  - Hypersensitivity [Recovered/Resolved]
  - Self-medication [Unknown]
  - Ill-defined disorder [Unknown]
